FAERS Safety Report 7981119-5 (Version None)
Quarter: 2011Q4

REPORT INFORMATION
  Report Type: 
  Country: None (occurrence: None)
  Receive Date: 20111212
  Receipt Date: 20111121
  Transmission Date: 20120403
  Serious: Yes (Hospitalization)
  Sender: FDA-Public Use
  Company Number: ALK_02141_2011

PATIENT
  Sex: Male
  Weight: 61.2356 kg

DRUGS (2)
  1. ANTIDEPRESSANTS [Concomitant]
  2. VIVITROL [Suspect]
     Indication: DRUG DEPENDENCE
     Dosage: (380 MG 1X/MONTH INTRAMUSCULAR)
     Route: 030
     Dates: start: 20111027

REACTIONS (2)
  - HYPERTENSION [None]
  - OVERDOSE [None]
